FAERS Safety Report 5256746-9 (Version None)
Quarter: 2007Q1

REPORT INFORMATION
  Report Type: 
  Country: None (occurrence: None)
  Receive Date: 20070306
  Receipt Date: 20070223
  Transmission Date: 20070707
  Serious: Yes (Other)
  Sender: FDA-Public Use
  Company Number: AU-PFIZER INC-2007015013

PATIENT
  Sex: Female

DRUGS (17)
  1. LIPITOR [Suspect]
  2. COLOFAC [Concomitant]
  3. PROCHLORPERAZINE [Concomitant]
  4. LEVOTHYROXINE SODIUM [Concomitant]
  5. OSTEOVIT [Concomitant]
  6. PARIET [Concomitant]
  7. RANI [Concomitant]
  8. MICARDIS [Concomitant]
  9. GLIMEPIRIDE [Concomitant]
  10. PLAVIX [Concomitant]
  11. MOVALIS [Concomitant]
  12. MOTILIUM ^ESTEVE^ [Concomitant]
  13. UREMIDE [Concomitant]
  14. EFFEXOR XR [Concomitant]
  15. VALIUM [Concomitant]
  16. DEPTRAN [Concomitant]
  17. ACETAMINOPHEN W/ CODEINE [Concomitant]
     Dosage: TEXT:8-FREQ:DAILY

REACTIONS (5)
  - DYSPHAGIA [None]
  - DYSPHONIA [None]
  - PARAESTHESIA [None]
  - PHARYNGOLARYNGEAL PAIN [None]
  - SLEEP APNOEA SYNDROME [None]
